FAERS Safety Report 3759885 (Version 10)
Quarter: 2013Q2

REPORT INFORMATION
  Report Type: Spontaneous
  Country: JP (occurrence: None)
  Receive Date: 20020131
  Receipt Date: 20130612
  Transmission Date: 20140414
  Serious: Yes (Life-Threatening, Hospitalization, Other)
  Sender: FDA-Public Use
  Company Number: 2002000251-FJ

PATIENT
  Age: 56 Year
  Sex: Male
  Weight: 52 kg

DRUGS (5)
  1. TACROLIMUS [Suspect]
     Indication: RENAL TRANSPLANT
     Route: 048
     Dates: start: 20000208, end: 20010125
  2. MIZORIBINE [Suspect]
     Indication: RENAL TRANSPLANT
     Route: 048
     Dates: start: 20000208, end: 20020116
  3. PREDNISOLONE [Suspect]
     Route: 048
     Dates: start: 20000208
  4. FUNGIZONE [Concomitant]
  5. INSULIN NOS [Concomitant]

REACTIONS (7)
  - Kaposi^s sarcoma [None]
  - Pneumatosis intestinalis [None]
  - Gastrointestinal disorder [None]
  - Haemangioma [None]
  - Human herpesvirus 8 infection [None]
  - Gastritis atrophic [None]
  - Gastric polyps [None]
